FAERS Safety Report 4565623-8 (Version None)
Quarter: 2005Q1

REPORT INFORMATION
  Report Type: 
  Country: None (occurrence: None)
  Receive Date: 20050131
  Receipt Date: 20050111
  Transmission Date: 20050727
  Serious: Yes (Other)
  Sender: FDA-Public Use
  Company Number: CA-JNJFOC-20050103160

PATIENT
  Sex: Female

DRUGS (4)
  1. RISPERDAL [Suspect]
  2. RISPERDAL [Suspect]
     Indication: DEPRESSION
     Dosage: .25 MG IN THE MORNING, .5 MG IN THE EVENING
  3. RISPERDAL [Suspect]
     Indication: OBSESSIVE THOUGHTS
  4. CLOMIPRAMINE HCL [Concomitant]
     Indication: DEPRESSION
     Dosage: 25 MG TABS (2 TABS EACH AM ADN 3 TABS EACH EVENING)

REACTIONS (3)
  - RETINAL DETACHMENT [None]
  - VISION BLURRED [None]
  - VISUAL DISTURBANCE [None]
